FAERS Safety Report 25048228 (Version 1)
Quarter: 2025Q1

REPORT INFORMATION
  Report Type: Spontaneous
  Country: US (occurrence: US)
  Receive Date: 20250307
  Receipt Date: 20250307
  Transmission Date: 20250408
  Serious: No
  Sender: ROCHE
  Company Number: US-ROCHE-10000222978

PATIENT
  Sex: Male

DRUGS (1)
  1. ESBRIET [Suspect]
     Active Substance: PIRFENIDONE
     Indication: Idiopathic pulmonary fibrosis
     Route: 048
     Dates: start: 202501

REACTIONS (11)
  - Hypoacusis [Unknown]
  - Fatigue [Unknown]
  - Fatigue [Unknown]
  - Ear congestion [Unknown]
  - Decreased appetite [Unknown]
  - Weight decreased [Unknown]
  - Asthenia [Unknown]
  - Upper respiratory tract infection [Unknown]
  - Dry skin [Unknown]
  - Diarrhoea [Unknown]
  - Cognitive disorder [Unknown]
